FAERS Safety Report 19607317 (Version 1)
Quarter: 2021Q3

REPORT INFORMATION
  Report Type: Spontaneous
  Country: US (occurrence: US)
  Receive Date: 20210726
  Receipt Date: 20210726
  Transmission Date: 20211014
  Serious: Yes (Hospitalization, Other)
  Sender: FDA-Public Use
  Company Number: US-CIPLA LTD.-2021US05088

PATIENT

DRUGS (10)
  1. 5?FLUOROURACIL [FLUOROURACIL SODIUM] [Suspect]
     Active Substance: FLUOROURACIL SODIUM
     Dosage: 2400 MG/M2, CONTINUOUS INFUSION (1200 MG/M2/DAY) OVER 46 H
     Route: 042
  2. PEGFILGRASTIM [Concomitant]
     Active Substance: PEGFILGRASTIM
     Indication: PROPHYLAXIS
     Dosage: 6 MG SUBQ 24 H AFTER COMPLETION OF CHEMOTHERAPY
     Route: 065
  3. 5?FLUOROURACIL [FLUOROURACIL SODIUM] [Suspect]
     Active Substance: FLUOROURACIL SODIUM
     Dosage: 1600 MG/M2 (800 MG/M2/DAY) CONTINUOUS INFUSION OVER 46 H
     Route: 042
  4. 5?FLUOROURACIL [FLUOROURACIL SODIUM] [Suspect]
     Active Substance: FLUOROURACIL SODIUM
     Dosage: 2000 MG/M2 (1000 MG/M2/DAY) CONTINUOUS INFUSION OVER 46 H
     Route: 042
  5. OXALIPLATIN. [Suspect]
     Active Substance: OXALIPLATIN
     Indication: COLON CANCER METASTATIC
     Dosage: 85 MILLIGRAM/SQ. METER, INFUSION OVER 2 H
     Route: 042
  6. 5?FLUOROURACIL [FLUOROURACIL SODIUM] [Suspect]
     Active Substance: FLUOROURACIL SODIUM
     Dosage: 1200 MG/M2 (600 MG/M2/DAY) CONTINUOUS INFUSION OVER 46 H
     Route: 042
  7. LEUCOVORIN [FOLINIC ACID] [Suspect]
     Active Substance: LEUCOVORIN
     Indication: COLON CANCER METASTATIC
     Dosage: 400 MILLIGRAM/SQ. METER, INFUSION OVER 2 H
     Route: 042
  8. OXALIPLATIN. [Suspect]
     Active Substance: OXALIPLATIN
     Dosage: 65 MILLIGRAM/SQ. METER, INFUSION OVER 2 H
     Route: 042
  9. OXALIPLATIN. [Suspect]
     Active Substance: OXALIPLATIN
     Dosage: 50 MILLIGRAM/SQ. METER INFUSION OVER 2 H
     Route: 042
  10. 5?FLUOROURACIL [FLUOROURACIL SODIUM] [Suspect]
     Active Substance: FLUOROURACIL SODIUM
     Indication: COLON CANCER METASTATIC
     Dosage: 400 MG/M2, UNK
     Route: 040

REACTIONS (8)
  - Fatigue [Unknown]
  - Lip ulceration [Unknown]
  - Toxicity to various agents [Unknown]
  - Nausea [Unknown]
  - Oral candidiasis [Unknown]
  - Dysphagia [Unknown]
  - Dyspepsia [Unknown]
  - Mucosal inflammation [Unknown]
